FAERS Safety Report 25897482 (Version 1)
Quarter: 2025Q4

REPORT INFORMATION
  Report Type: Spontaneous
  Country: JP (occurrence: JP)
  Receive Date: 20251008
  Receipt Date: 20251008
  Transmission Date: 20260119
  Serious: Yes (Hospitalization)
  Sender: EISAI
  Company Number: JP-Eisai-202508305_LEN-EC_P_1

PATIENT
  Sex: Female

DRUGS (2)
  1. LENVIMA [Suspect]
     Active Substance: LENVATINIB
     Indication: Endometrial cancer
     Route: 048
     Dates: start: 20250818, end: 20250930
  2. KEYTRUDA [Suspect]
     Active Substance: PEMBROLIZUMAB
     Indication: Endometrial cancer
     Dosage: 2 COURSES
     Route: 041
     Dates: start: 20250818, end: 20250930

REACTIONS (1)
  - Pneumonitis [Not Recovered/Not Resolved]

NARRATIVE: CASE EVENT DATE: 20250930
